FAERS Safety Report 9168547 (Version 1)
Quarter: 2013Q1

REPORT INFORMATION
  Report Type: Spontaneous
  Country: US (occurrence: None)
  Receive Date: 20130314
  Receipt Date: 20130314
  Transmission Date: 20140127
  Serious: Yes (Hospitalization)
  Sender: FDA-Public Use
  Company Number: None

PATIENT
  Age: 58 Year
  Sex: Female
  Weight: 73 kg

DRUGS (2)
  1. CYCLOPHOSPHAMIDE [Suspect]
     Indication: BREAST CANCER
     Route: 042
     Dates: start: 20121024, end: 20121024
  2. CYCLOPHOSPHAMIDE [Suspect]
     Dosage: LOT # 2C756B EXPIRATION 31-MAY-2015

REACTIONS (5)
  - Mental status changes [None]
  - Nausea [None]
  - Headache [None]
  - Fall [None]
  - Hyponatraemia [None]
